FAERS Safety Report 8533592-1 (Version None)
Quarter: 2012Q3

REPORT INFORMATION
  Report Type: 
  Country: None (occurrence: None)
  Receive Date: 20120724
  Receipt Date: 20120713
  Transmission Date: 20120928
  Serious: Yes (Hospitalization)
  Sender: FDA-Public Use
  Company Number: JP-VERTEX PHARMACEUTICALS INC.-AE-2012-010567

PATIENT
  Age: 50 Year
  Sex: Female

DRUGS (3)
  1. TELAVIC (TELAPREVIR) [Suspect]
     Route: 048
     Dates: start: 20120530, end: 20120708
  2. RIBAVIRIN [Concomitant]
     Route: 048
     Dates: end: 20120708
  3. PEGINTERFERON ALFA-2B [Concomitant]
     Route: 058
     Dates: end: 20120708

REACTIONS (1)
  - DRUG ERUPTION [None]
